FAERS Safety Report 4525635-7 (Version None)
Quarter: 2004Q4

REPORT INFORMATION
  Report Type: 
  Country: None (occurrence: None)
  Receive Date: 20041116
  Receipt Date: 20040804
  Transmission Date: 20050328
  Serious: No
  Sender: FDA-Public Use
  Company Number: S04-USA-05898-01

PATIENT
  Age: 77 Year
  Sex: Female

DRUGS (1)
  1. NAMENDA [Suspect]
     Indication: MEMORY IMPAIRMENT
     Dosage: 5 MG QD PO
     Route: 048

REACTIONS (1)
  - PALPITATIONS [None]
